FAERS Safety Report 6213708-2 (Version None)
Quarter: 2009Q2

REPORT INFORMATION
  Report Type: 
  Country: None (occurrence: None)
  Receive Date: 20090601
  Receipt Date: 20090521
  Transmission Date: 20091009
  Serious: Yes (Other)
  Sender: FDA-Public Use
  Company Number: 2009AL003543

PATIENT
  Sex: Female

DRUGS (3)
  1. DILTIAZEM HYDROCHLORIDE [Suspect]
     Dosage: PO
     Route: 048
  2. ARICEPT [Concomitant]
  3. ZONEGRAN [Concomitant]

REACTIONS (2)
  - ACUTE CORONARY SYNDROME [None]
  - FALL [None]
